FAERS Safety Report 7081821-6 (Version None)
Quarter: 2010Q4

REPORT INFORMATION
  Report Type: 
  Country: None (occurrence: None)
  Receive Date: 20101103
  Receipt Date: 20101026
  Transmission Date: 20110411
  Serious: Yes (Other)
  Sender: FDA-Public Use
  Company Number: GXKR2010FR12071

PATIENT
  Age: 40 Year
  Sex: Male

DRUGS (2)
  1. TRAMADOL (NGX) [Suspect]
     Indication: BACK PAIN
     Dosage: 100 MG/DAY
  2. TRAMADOL (NGX) [Suspect]
     Dosage: ESCALATION UNTIL 500 MG/DAY
     Route: 065

REACTIONS (11)
  - ABDOMINAL PAIN [None]
  - CHILLS [None]
  - DEPENDENCE [None]
  - DRUG ABUSE [None]
  - DRUG WITHDRAWAL SYNDROME [None]
  - EXCESSIVE EYE BLINKING [None]
  - INSOMNIA [None]
  - MUSCLE CONTRACTIONS INVOLUNTARY [None]
  - MYALGIA [None]
  - RHINORRHOEA [None]
  - TIC [None]
